FAERS Safety Report 14850535 (Version 1)
Quarter: 2018Q2

REPORT INFORMATION
  Report Type: Report from Study
  Country: GB (occurrence: GB)
  Receive Date: 20180505
  Receipt Date: 20180505
  Transmission Date: 20180711
  Serious: Yes (Other)
  Sender: FDA-Public Use
  Company Number: GB-TESARO, INC-GB-2018TSO02145

PATIENT

DRUGS (1)
  1. NIRAPARIB [Suspect]
     Active Substance: NIRAPARIB
     Indication: PRODUCT USED FOR UNKNOWN INDICATION
     Dosage: UNK
     Dates: end: 20180108

REACTIONS (5)
  - Small intestinal obstruction [Unknown]
  - Ascites [Unknown]
  - Anaemia [Unknown]
  - Disease progression [Unknown]
  - Carbohydrate antigen 125 increased [Unknown]
